FAERS Safety Report 18533369 (Version 2)
Quarter: 2020Q4

REPORT INFORMATION
  Report Type: Report from Study
  Country: US (occurrence: US)
  Receive Date: 20201123
  Receipt Date: 20201224
  Transmission Date: 20210114
  Serious: Yes (Death, Other)
  Sender: FDA-Public Use
  Company Number: NVSC2020US310273

PATIENT
  Age: 49 Year
  Sex: Female

DRUGS (1)
  1. ADAKVEO [Suspect]
     Active Substance: CRIZANLIZUMAB-TMCA
     Indication: SICKLE CELL DISEASE
     Dosage: UNK
     Route: 042
     Dates: start: 20200626, end: 20201009

REACTIONS (3)
  - General physical health deterioration [Unknown]
  - Sickle cell disease [Fatal]
  - Seizure [Unknown]

NARRATIVE: CASE EVENT DATE: 20201009
